FAERS Safety Report 24435648 (Version 1)
Quarter: 2024Q4

REPORT INFORMATION
  Report Type: Report from Study
  Country: CA (occurrence: CA)
  Receive Date: 20241015
  Receipt Date: 20241015
  Transmission Date: 20250115
  Serious: Yes (Other)
  Sender: ABBVIE
  Company Number: CA-ABBVIE-5961418

PATIENT
  Age: 33 Year
  Sex: Male

DRUGS (1)
  1. SKYRIZI [Suspect]
     Active Substance: RISANKIZUMAB-RZAA
     Indication: Crohn^s disease
     Route: 058
     Dates: start: 20230501

REACTIONS (4)
  - Laparotomy [Unknown]
  - Ileostomy closure [Unknown]
  - Ileocaecal resection [Unknown]
  - Fistula repair [Unknown]

NARRATIVE: CASE EVENT DATE: 20240101
